FAERS Safety Report 13243890 (Version 1)
Quarter: 2017Q1

REPORT INFORMATION
  Report Type: Spontaneous
  Country: US (occurrence: US)
  Receive Date: 20170217
  Receipt Date: 20170217
  Transmission Date: 20170428
  Serious: Yes (Hospitalization)
  Sender: FDA-Public Use
  Company Number: None

PATIENT
  Age: 47 Year
  Sex: Male
  Weight: 106.69 kg

DRUGS (2)
  1. PRIFTIN [Suspect]
     Active Substance: RIFAPENTINE
     Indication: LATENT TUBERCULOSIS
     Route: 048
  2. ISONIAZID 300MG [Suspect]
     Active Substance: ISONIAZID
     Indication: LATENT TUBERCULOSIS
     Route: 048
     Dates: start: 20170119

REACTIONS (7)
  - Heart rate increased [None]
  - Dyspnoea [None]
  - Blood pressure increased [None]
  - Cold sweat [None]
  - Rash [None]
  - Movement disorder [None]
  - Dizziness [None]

NARRATIVE: CASE EVENT DATE: 20170119
